FAERS Safety Report 9512213 (Version 1)
Quarter: 2013Q3

REPORT INFORMATION
  Report Type: Report from Study
  Country: MX (occurrence: MX)
  Receive Date: 20130910
  Receipt Date: 20130910
  Transmission Date: 20140515
  Serious: Yes (Other)
  Sender: FDA-Public Use
  Company Number: PHHY2013MX099450

PATIENT
  Age: 66 Year
  Sex: Female

DRUGS (5)
  1. STALEVO [Suspect]
     Indication: PARKINSON^S DISEASE
     Dosage: 1 DF, DAILY (200 MG/100 MG/25 MG DAILY)
     Route: 048
     Dates: start: 201303, end: 201309
  2. STALEVO [Suspect]
     Dosage: 1 DF, DAILY (200 MG/150 MG/37.5 MG DAILY)
     Route: 048
  3. STALEVO [Suspect]
     Dosage: 1 DF, DAILY (200 MG/200 MG/50 MG DAILY)
     Route: 048
  4. PK MERZ [Concomitant]
     Dosage: 1 DF, DAILY (1/2 IN THE MORNING AND 1/2 AT NIGHT)
     Dates: start: 201303
  5. MELOXICAM [Concomitant]
     Dosage: 1 UKN, DAILY
     Dates: start: 201304

REACTIONS (3)
  - Dementia Alzheimer^s type [Unknown]
  - Restlessness [Not Recovered/Not Resolved]
  - Stress [Not Recovered/Not Resolved]
